FAERS Safety Report 16244448 (Version 4)
Quarter: 2020Q1

REPORT INFORMATION
  Report Type: Report from Study
  Country: FR (occurrence: FR)
  Receive Date: 20190426
  Receipt Date: 20200110
  Transmission Date: 20200409
  Serious: Yes (Death, Hospitalization, Other)
  Sender: FDA-Public Use
  Company Number: FR-JNJFOC-20190425744

PATIENT
  Age: 71 Year
  Sex: Female
  Weight: 85 kg

DRUGS (36)
  1. STELARA [Suspect]
     Active Substance: USTEKINUMAB
     Route: 058
     Dates: start: 20171027, end: 20180126
  2. KARDEGIC [Concomitant]
     Active Substance: ASPIRIN DL-LYSINE
     Route: 065
     Dates: start: 20130620
  3. CHLORAMINOPHENE [Concomitant]
     Active Substance: CHLORAMBUCIL
     Route: 065
     Dates: start: 20181004, end: 20190124
  4. CHLORAMINOPHENE [Concomitant]
     Active Substance: CHLORAMBUCIL
     Route: 065
     Dates: start: 20181009
  5. HYDROXYZINE [Concomitant]
     Active Substance: HYDROXYZINE HYDROCHLORIDE
     Route: 065
     Dates: start: 201811
  6. STELARA [Suspect]
     Active Substance: USTEKINUMAB
     Indication: PSORIASIS
     Route: 058
     Dates: start: 20170728, end: 20170828
  7. CORTANCYL [Concomitant]
     Active Substance: PREDNISONE
     Route: 065
     Dates: start: 201811
  8. DESLORATADINE. [Concomitant]
     Active Substance: DESLORATADINE
     Dates: start: 201811
  9. STRESAM [Concomitant]
     Active Substance: ETIFOXINE
     Route: 065
  10. BETNEVAL [Concomitant]
     Active Substance: BETAMETHASONE VALERATE
  11. STELARA [Suspect]
     Active Substance: USTEKINUMAB
     Route: 058
     Dates: start: 201708
  12. STELARA [Suspect]
     Active Substance: USTEKINUMAB
     Route: 058
     Dates: start: 201801, end: 201802
  13. BETNEVAL [Concomitant]
     Active Substance: BETAMETHASONE VALERATE
     Route: 065
     Dates: start: 20150408
  14. TRAMADOL. [Concomitant]
     Active Substance: TRAMADOL
     Route: 065
     Dates: start: 201811
  15. STELARA [Suspect]
     Active Substance: USTEKINUMAB
     Route: 058
     Dates: start: 20180126, end: 20180323
  16. CORTANCYL [Concomitant]
     Active Substance: PREDNISONE
     Route: 065
     Dates: start: 20181004
  17. NOROXINE [Concomitant]
     Active Substance: NORFLOXACIN
     Route: 065
     Dates: start: 20160114, end: 20160201
  18. STRESAM [Concomitant]
     Active Substance: ETIFOXINE
     Route: 065
     Dates: start: 20180123
  19. FLECAINE [Concomitant]
     Active Substance: FLECAINIDE
     Dates: start: 20170724
  20. PARACETAMOL [Concomitant]
     Active Substance: ACETAMINOPHEN
     Route: 065
     Dates: start: 201811
  21. CLARELUX [Concomitant]
     Active Substance: CLOBETASOL PROPIONATE
  22. DAIVOBET [Concomitant]
     Active Substance: BETAMETHASONE DIPROPIONATE\CALCIPOTRIENE
     Dates: start: 20151126
  23. DERMOVAL                           /00008501/ [Concomitant]
     Active Substance: CLOBETASOL PROPIONATE
     Route: 065
     Dates: start: 20180717
  24. NERISONE [Concomitant]
     Active Substance: DIFLUCORTOLONE VALERATE
     Route: 065
     Dates: start: 20180323, end: 20180423
  25. CLOBEX                             /00012002/ [Concomitant]
     Active Substance: CLOXACILLIN SODIUM
     Route: 065
  26. STELARA [Suspect]
     Active Substance: USTEKINUMAB
     Route: 058
     Dates: start: 20170828, end: 20171027
  27. ATARAX [Concomitant]
     Active Substance: HYDROXYZINE HYDROCHLORIDE
     Route: 065
     Dates: start: 20150408
  28. DERMOVAL                           /00008501/ [Concomitant]
     Active Substance: CLOBETASOL PROPIONATE
     Route: 065
     Dates: start: 20150408
  29. ECO [Concomitant]
     Route: 065
     Dates: start: 20180323, end: 201804
  30. GLYCEROTONE                        /00200601/ [Concomitant]
     Route: 065
     Dates: start: 20180323
  31. FLECAINE [Concomitant]
     Active Substance: FLECAINIDE
     Dates: start: 20170728
  32. CHLORAMBUCIL [Concomitant]
     Active Substance: CHLORAMBUCIL
     Route: 065
     Dates: start: 201811
  33. CHLORAMBUCIL [Concomitant]
     Active Substance: CHLORAMBUCIL
  34. KARDEGIC [Concomitant]
     Active Substance: ASPIRIN DL-LYSINE
     Route: 065
     Dates: start: 2015
  35. AUGMENTIN [Concomitant]
     Active Substance: AMOXICILLIN\CLAVULANATE POTASSIUM
     Route: 065
     Dates: start: 20150327, end: 20150403
  36. LOCAPRED [Concomitant]
     Active Substance: DESONIDE
     Route: 065
     Dates: start: 20180323

REACTIONS (10)
  - Inappropriate schedule of product administration [Unknown]
  - Osteosclerosis [Unknown]
  - Death [Fatal]
  - Dental cyst [Unknown]
  - Off label use [Unknown]
  - Mucormycosis [Unknown]
  - Bundle branch block right [Unknown]
  - Cutaneous T-cell lymphoma [Not Recovered/Not Resolved]
  - Psoriasis [Unknown]
  - Osteoarthritis [Unknown]

NARRATIVE: CASE EVENT DATE: 201802
